FAERS Safety Report 10637930 (Version 3)
Quarter: 2015Q3

REPORT INFORMATION
  Report Type: Report from Study
  Country: DE (occurrence: DE)
  Receive Date: 20141208
  Receipt Date: 20150805
  Transmission Date: 20151125
  Serious: Yes (Hospitalization)
  Sender: FDA-Public Use
  Company Number: DE-ABBVIE-14K-062-1315049-00

PATIENT
  Age: 54 Year
  Sex: Female
  Weight: 88 kg

DRUGS (10)
  1. DECORTIN [Concomitant]
     Active Substance: PREDNISONE
     Indication: RHEUMATOID ARTHRITIS
     Dosage: 1-0-0
     Route: 048
  2. PANTOZOL [Concomitant]
     Active Substance: PANTOPRAZOLE SODIUM
     Indication: PRODUCT USED FOR UNKNOWN INDICATION
     Dosage: 0-0-1
  3. VIGANTOLETTEN [Concomitant]
     Active Substance: CHOLECALCIFEROL
     Indication: PRODUCT USED FOR UNKNOWN INDICATION
     Dosage: 1-0-0
  4. LEFLUNOMIDE. [Suspect]
     Active Substance: LEFLUNOMIDE
     Dosage: 1-0-0
     Route: 048
     Dates: start: 201303
  5. BELOC-ZOK [Concomitant]
     Active Substance: METOPROLOL SUCCINATE
     Indication: PRODUCT USED FOR UNKNOWN INDICATION
     Dosage: 1-0-1
  6. LEFLUNOMIDE. [Suspect]
     Active Substance: LEFLUNOMIDE
     Indication: RHEUMATOID ARTHRITIS
     Route: 048
     Dates: start: 200503, end: 201110
  7. HUMIRA [Suspect]
     Active Substance: ADALIMUMAB
     Indication: RHEUMATOID ARTHRITIS
     Route: 058
     Dates: start: 20121010
  8. L-THYROXIN [Concomitant]
     Active Substance: LEVOTHYROXINE SODIUM
     Indication: HYPERTHYROIDISM
  9. L-THYROX [Suspect]
     Active Substance: LEVOTHYROXINE SODIUM
     Indication: HYPERTHYROIDISM
     Route: 065
     Dates: end: 201411
  10. L-THYROX [Suspect]
     Active Substance: LEVOTHYROXINE SODIUM
     Dosage: 1-0-0
     Route: 065
     Dates: start: 201411

REACTIONS (15)
  - Atrial fibrillation [Recovered/Resolved]
  - Activated partial thromboplastin time prolonged [Unknown]
  - Blood cholesterol increased [Unknown]
  - Blood glucose increased [Unknown]
  - Pertussis [Recovered/Resolved]
  - CHA2DS2-VASc annual stroke risk high [Unknown]
  - Blood sodium increased [Unknown]
  - Aspartate aminotransferase increased [Unknown]
  - Red blood cell sedimentation rate increased [Unknown]
  - Supraventricular tachyarrhythmia [Unknown]
  - Dyspnoea [Recovering/Resolving]
  - Hyperthyroidism [Recovered/Resolved]
  - Prothrombin time prolonged [Unknown]
  - Pneumonia [Recovered/Resolved]
  - Gamma-glutamyltransferase increased [Unknown]

NARRATIVE: CASE EVENT DATE: 201410
